FAERS Safety Report 4983370-5 (Version None)
Quarter: 2006Q2

REPORT INFORMATION
  Report Type: 
  Country: None (occurrence: None)
  Receive Date: 20060426
  Receipt Date: 20050908
  Transmission Date: 20061013
  Serious: Yes (Hospitalization, Disabling)
  Sender: FDA-Public Use
  Company Number: US-MERCK-0509USA01211

PATIENT
  Age: 64 Year
  Sex: Male
  Weight: 105 kg

DRUGS (7)
  1. VIOXX [Suspect]
     Indication: OSTEOARTHRITIS
     Route: 048
     Dates: start: 19990101, end: 20030801
  2. VIOXX [Suspect]
     Indication: RHEUMATOID ARTHRITIS
     Route: 048
     Dates: start: 19990101, end: 20030801
  3. [THERAPY UNSPECIFIED] [Concomitant]
     Route: 065
  4. ASPIRIN [Concomitant]
     Route: 065
     Dates: start: 19920101, end: 20030801
  5. ZOCOR [Concomitant]
     Indication: BLOOD CHOLESTEROL INCREASED
     Route: 065
     Dates: start: 19920101
  6. ZOCOR [Concomitant]
     Route: 065
     Dates: start: 19920101
  7. PREDNISONE [Concomitant]
     Route: 065
     Dates: start: 19960101, end: 20020101

REACTIONS (55)
  - ASPARTATE AMINOTRANSFERASE INCREASED [None]
  - ASTHENIA [None]
  - BACK DISORDER [None]
  - BLOOD ALKALINE PHOSPHATASE INCREASED [None]
  - BLOOD CREATINE PHOSPHOKINASE INCREASED [None]
  - BLOOD GLUCOSE INCREASED [None]
  - BLOOD LACTATE DEHYDROGENASE INCREASED [None]
  - BLOOD PRESSURE INADEQUATELY CONTROLLED [None]
  - CARDIOMEGALY [None]
  - CELLULITIS [None]
  - CHEST DISCOMFORT [None]
  - CONDITION AGGRAVATED [None]
  - CREATINE PHOSPHOKINASE DECREASED [None]
  - DEEP VEIN THROMBOSIS [None]
  - DEPRESSION [None]
  - DISCOMFORT [None]
  - DIZZINESS [None]
  - DRUG DEPENDENCE [None]
  - DYSPLASTIC NAEVUS SYNDROME [None]
  - DYSPNOEA [None]
  - FEELING ABNORMAL [None]
  - GASTROOESOPHAGEAL REFLUX DISEASE [None]
  - HAEMATURIA [None]
  - HAEMOGLOBIN DECREASED [None]
  - HEADACHE [None]
  - HERPES ZOSTER [None]
  - HYPERLIPIDAEMIA [None]
  - HYPERTENSION [None]
  - HYPERTENSIVE HEART DISEASE [None]
  - HYPOGLYCAEMIA [None]
  - HYPOTENSION [None]
  - IMMUNODEFICIENCY [None]
  - JOINT INJURY [None]
  - LOSS OF CONSCIOUSNESS [None]
  - LUMBAR RADICULOPATHY [None]
  - NEUROPATHY [None]
  - OEDEMA PERIPHERAL [None]
  - OSTEOPOROSIS [None]
  - PITTING OEDEMA [None]
  - PNEUMONIA [None]
  - POST HERPETIC NEURALGIA [None]
  - POST-TRAUMATIC STRESS DISORDER [None]
  - PULMONARY EMBOLISM [None]
  - RHEUMATOID ARTHRITIS [None]
  - ROTATOR CUFF SYNDROME [None]
  - SHOULDER ARTHROPLASTY [None]
  - SHOULDER PAIN [None]
  - SKIN LESION [None]
  - SKIN ULCER [None]
  - SODIUM RETENTION [None]
  - SPINAL CORD DISORDER [None]
  - SYNCOPE [None]
  - TENDONITIS [None]
  - VENTRICULAR EXTRASYSTOLES [None]
  - WHITE BLOOD CELL COUNT INCREASED [None]
